FAERS Safety Report 22241877 (Version 2)
Quarter: 2023Q2

REPORT INFORMATION
  Report Type: Report from Study
  Country: US (occurrence: US)
  Receive Date: 20230421
  Receipt Date: 20230616
  Transmission Date: 20230722
  Serious: Yes (Other)
  Sender: FDA-Public Use
  Company Number: US-002147023-NVSC2023US090015

PATIENT
  Age: 81 Year
  Sex: Female
  Weight: 54.2 kg

DRUGS (4)
  1. AFINITOR [Suspect]
     Active Substance: EVEROLIMUS
     Indication: Endometrial cancer recurrent
     Dosage: 10 MG, QD
     Route: 048
     Dates: start: 20221206, end: 20230419
  2. LETROZOLE [Suspect]
     Active Substance: LETROZOLE
     Indication: Endometrial cancer recurrent
     Dosage: 2.5 MG
     Route: 048
     Dates: start: 20221206, end: 20230419
  3. LEVOTHYROXINE [Suspect]
     Active Substance: LEVOTHYROXINE
     Indication: Hypothyroidism
     Dosage: 25 MG
     Route: 048
  4. GABAPENTIN [Suspect]
     Active Substance: GABAPENTIN
     Indication: Compression fracture
     Dosage: 30 MG, TID
     Route: 048

REACTIONS (6)
  - Endometrial cancer recurrent [Unknown]
  - Condition aggravated [Unknown]
  - Metastases to soft tissue [Unknown]
  - Lymphadenopathy [Unknown]
  - Drug ineffective [Unknown]
  - Product use in unapproved indication [Unknown]

NARRATIVE: CASE EVENT DATE: 20230419
